FAERS Safety Report 6525225-0 (Version None)
Quarter: 2010Q1

REPORT INFORMATION
  Report Type: 
  Country: None (occurrence: None)
  Receive Date: 20100104
  Receipt Date: 20091224
  Transmission Date: 20100710
  Serious: Yes (Other)
  Sender: FDA-Public Use
  Company Number: US-JNJFOC-20091207453

PATIENT
  Sex: Male
  Weight: 97.52 kg

DRUGS (5)
  1. REMICADE [Suspect]
     Indication: CROHN'S DISEASE
     Route: 042
  2. LORTAB [Concomitant]
     Indication: PAIN
  3. ASACOL [Concomitant]
     Indication: CROHN'S DISEASE
  4. ENTOCORT EC [Concomitant]
     Indication: CROHN'S DISEASE
  5. BENTYL [Concomitant]
     Indication: CROHN'S DISEASE

REACTIONS (3)
  - CROHN'S DISEASE [None]
  - FOOT OPERATION [None]
  - INTERVERTEBRAL DISC OPERATION [None]
